FAERS Safety Report 6343392-9 (Version None)
Quarter: 2009Q3

REPORT INFORMATION
  Report Type: 
  Country: None (occurrence: None)
  Receive Date: 20090908
  Receipt Date: 20090901
  Transmission Date: 20100115
  Serious: Yes (Death)
  Sender: FDA-Public Use
  Company Number: PHEH2009US07690

PATIENT
  Sex: Male

DRUGS (12)
  1. EXJADE [Suspect]
     Indication: MYELODYSPLASTIC SYNDROME
     Dosage: 1500 MG, QD
     Route: 048
     Dates: start: 20070401, end: 20071201
  2. LEXAPRO [Concomitant]
  3. AMIODARONE [Concomitant]
  4. OMEPRAZOLE [Concomitant]
  5. GLIPIZIDE [Concomitant]
  6. TIMOLOL [Concomitant]
  7. LASIX [Concomitant]
  8. PLAVIX [Concomitant]
  9. COREG [Concomitant]
  10. HYDRALAZINE HCL [Concomitant]
  11. LYRICA [Concomitant]
  12. ASPIRIN [Concomitant]

REACTIONS (1)
  - DEATH [None]
